FAERS Safety Report 7825405-8 (Version None)
Quarter: 2011Q4

REPORT INFORMATION
  Report Type: 
  Country: None (occurrence: None)
  Receive Date: 20111017
  Receipt Date: 20111005
  Transmission Date: 20120403
  Serious: Yes (Other)
  Sender: FDA-Public Use
  Company Number: 2011AP002330

PATIENT
  Age: 36 Year
  Sex: Female

DRUGS (3)
  1. SERTRALINE HYDROCHLORIDE [Suspect]
     Dosage: 100 MG;PO;QD
     Route: 048
  2. AZATHIOPRINE [Suspect]
     Dosage: QD
  3. PROGRAF [Suspect]
     Indication: LIVER TRANSPLANT
     Dosage: 10 MG;PO;QD
     Route: 048

REACTIONS (3)
  - MATERNAL EXPOSURE DURING PREGNANCY [None]
  - TREATMENT NONCOMPLIANCE [None]
  - DRUG LEVEL BELOW THERAPEUTIC [None]
